FAERS Safety Report 8007136-7 (Version None)
Quarter: 2011Q4

REPORT INFORMATION
  Report Type: 
  Country: None (occurrence: None)
  Receive Date: 20111227
  Receipt Date: 20111216
  Transmission Date: 20120403
  Serious: Yes (Other)
  Sender: FDA-Public Use
  Company Number: DE-UCBSA-044667

PATIENT
  Age: 33 Year
  Sex: Male

DRUGS (10)
  1. JUICE PLUS [Concomitant]
     Indication: BRONCHITIS
  2. VIMPAT [Suspect]
     Indication: EPILEPSY
     Dosage: 100-0-100
     Dates: start: 20110101
  3. VALPROATE SODIUM [Concomitant]
     Dosage: REDUCED BY 800 MG/DAY
  4. BENALAPRIL [Concomitant]
     Dosage: 20-0-20
     Route: 048
  5. VALPROATE SODIUM [Concomitant]
     Indication: EPILEPSY
  6. VIMPAT [Suspect]
     Dosage: DAILY DOSE: 300 MG
     Dates: start: 20110401, end: 20110101
  7. JUICE PLUS [Concomitant]
     Indication: SKIN DISORDER
  8. VALPROATE SODIUM [Concomitant]
     Dosage: 600-0-600
     Route: 048
  9. KEPPRA [Suspect]
     Indication: CONVULSION
     Dosage: SINGLE DOSE : 500 (2 SINGLE DOSES PER DAY), TOTAL DAILY DOSE  : 1000
     Route: 048
  10. VIMPAT [Suspect]
     Dosage: SINGLE DOSE : 100, TOTAL DAILY DOSE :200
     Route: 048
     Dates: start: 20110301, end: 20110101

REACTIONS (12)
  - SWELLING FACE [None]
  - WEIGHT INCREASED [None]
  - ERYTHEMA [None]
  - HAIR GROWTH ABNORMAL [None]
  - RASH PRURITIC [None]
  - SKIN HYPOPLASIA [None]
  - FUNGAL INFECTION [None]
  - BRONCHITIS [None]
  - OCULAR HYPERAEMIA [None]
  - ABDOMINAL WALL DISORDER [None]
  - AGGRESSION [None]
  - THERAPEUTIC RESPONSE DECREASED [None]
